FAERS Safety Report 19399550 (Version 1)
Quarter: 2021Q2

REPORT INFORMATION
  Report Type: Spontaneous
  Country: CN (occurrence: CN)
  Receive Date: 20210610
  Receipt Date: 20210610
  Transmission Date: 20210717
  Serious: Yes (Other)
  Sender: FDA-Public Use
  Company Number: CN-BAXTER-2021BAX015123

PATIENT
  Age: 71 Year
  Sex: Male
  Weight: 57 kg

DRUGS (2)
  1. 20% MANNITOL INJECTION [Suspect]
     Active Substance: MANNITOL
     Indication: SWELLING
  2. 20% MANNITOL INJECTION [Suspect]
     Active Substance: MANNITOL
     Indication: FLUID RETENTION
     Route: 041
     Dates: start: 20210528, end: 20210528

REACTIONS (4)
  - Erythema [Recovering/Resolving]
  - Rubella [Recovered/Resolved]
  - Pallor [Recovered/Resolved]
  - Pruritus [Recovered/Resolved]

NARRATIVE: CASE EVENT DATE: 20210528
